FAERS Safety Report 24269341 (Version 1)
Quarter: 2024Q3

REPORT INFORMATION
  Report Type: Spontaneous
  Country: US (occurrence: None)
  Receive Date: 20240830
  Receipt Date: 20240830
  Transmission Date: 20241016
  Serious: No
  Sender: Public
  Company Number: None

PATIENT
  Age: 64 Year
  Sex: Female

DRUGS (1)
  1. LENALIDOMIDE [Suspect]
     Active Substance: LENALIDOMIDE
     Indication: Plasma cell myeloma
     Dosage: OTHER FREQUENCY : QD 21 ON 7 OFF;?
     Route: 048
     Dates: start: 20240511, end: 20240822

REACTIONS (1)
  - Rash [None]

NARRATIVE: CASE EVENT DATE: 20240822
